FAERS Safety Report 21797625 (Version 1)
Quarter: 2022Q4

REPORT INFORMATION
  Report Type: Spontaneous
  Country: JP (occurrence: JP)
  Receive Date: 20221230
  Receipt Date: 20221230
  Transmission Date: 20230113
  Serious: Yes (Other)
  Sender: FDA-Public Use
  Company Number: JP-Teva Takeda Yakuhin-2022-JP-004458J

PATIENT
  Age: 78 Year
  Sex: Female

DRUGS (1)
  1. ESTAZOLAM [Suspect]
     Active Substance: ESTAZOLAM
     Indication: Product used for unknown indication
     Dosage: DOSAGE IS UNKNOWN.
     Route: 048

REACTIONS (3)
  - Depressed level of consciousness [Unknown]
  - Somnolence [Unknown]
  - Overdose [Unknown]
